FAERS Safety Report 15306843 (Version 1)
Quarter: 2018Q3

REPORT INFORMATION
  Report Type: Spontaneous
  Country: US (occurrence: US)
  Receive Date: 20180810
  Receipt Date: 20180810
  Transmission Date: 20181010
  Serious: Yes (Life-Threatening)
  Sender: FDA-Public Use
  Company Number: None

PATIENT
  Age: 38 Year
  Sex: Female
  Weight: 61.23 kg

DRUGS (2)
  1. NATURE?THROID [Concomitant]
     Active Substance: THYROID, PORCINE
  2. PARAGARD T 380A [Suspect]
     Active Substance: COPPER
     Dates: start: 20180305, end: 20180804

REACTIONS (2)
  - Pregnancy with contraceptive device [None]
  - Maternal exposure during pregnancy [None]

NARRATIVE: CASE EVENT DATE: 20180804
